FAERS Safety Report 17669601 (Version 2)
Quarter: 2020Q2

REPORT INFORMATION
  Report Type: Spontaneous
  Country: IN (occurrence: IN)
  Receive Date: 20200415
  Receipt Date: 20200427
  Transmission Date: 20200713
  Serious: Yes (Life-Threatening, Hospitalization)
  Sender: FDA-Public Use
  Company Number: IN-MYLANLABS-2020M1037106

PATIENT
  Age: 35 Year
  Sex: Female
  Weight: 44 kg

DRUGS (8)
  1. DEXMEDETOMIDINE. [Interacting]
     Active Substance: DEXMEDETOMIDINE
     Indication: SEDATIVE THERAPY
     Dosage: 16 MICROGRAM, QH
     Route: 042
  2. LIGNOCAINE                         /00033401/ [Suspect]
     Active Substance: LIDOCAINE HYDROCHLORIDE
     Indication: DRUG THERAPY
     Dosage: 30 MILLILITER
     Route: 045
  3. DEXMEDETOMIDINE. [Interacting]
     Active Substance: DEXMEDETOMIDINE
     Dosage: 20 MICROGRAM, QH
     Route: 042
  4. DEXMEDETOMIDINE. [Interacting]
     Active Substance: DEXMEDETOMIDINE
     Dosage: WITHIN 5 MINUTES OF NASAL PACKING
     Route: 042
  5. GLYCOPYRROLATE                     /00196201/ [Concomitant]
     Active Substance: GLYCOPYRRONIUM
     Indication: PREMEDICATION
     Dosage: 0.2 MILLIGRAM
     Route: 065
  6. MIDAZOLAM. [Concomitant]
     Active Substance: MIDAZOLAM
     Indication: PREMEDICATION
     Dosage: 1 MILLIGRAM
     Route: 042
  7. VASOCON /00003903/ [Suspect]
     Active Substance: EPINEPHRINE BITARTRATE
     Indication: DRUG THERAPY
     Dosage: 3MG OF EPINEPHRINE [1:2,00,000]
     Route: 045
  8. PENTAZOCINE [Concomitant]
     Active Substance: PENTAZOCINE
     Indication: PREMEDICATION
     Dosage: 20 MILLIGRAM
     Route: 065

REACTIONS (10)
  - Heart rate increased [Recovered/Resolved]
  - Circulatory collapse [Recovered/Resolved]
  - Metabolic acidosis [Recovered/Resolved]
  - Myocardial ischaemia [Recovering/Resolving]
  - Blood pressure increased [Recovered/Resolved]
  - Drug interaction [Recovered/Resolved]
  - Anuria [Recovered/Resolved]
  - Ventricular hypokinesia [Recovered/Resolved]
  - Pulmonary oedema [Recovered/Resolved]
  - Ventricular extrasystoles [Recovered/Resolved]
